FAERS Safety Report 7039975-3 (Version None)
Quarter: 2010Q4

REPORT INFORMATION
  Report Type: 
  Country: None (occurrence: None)
  Receive Date: 20101012
  Receipt Date: 20101005
  Transmission Date: 20110411
  Serious: Yes (Hospitalization, Other)
  Sender: FDA-Public Use
  Company Number: AU-ROCHE-719972

PATIENT
  Sex: Male
  Weight: 102 kg

DRUGS (19)
  1. ACTEMRA [Suspect]
     Indication: RHEUMATOID ARTHRITIS
     Dosage: FORM: INFUSION; FREQUENCY: MONTHLY, STARTING DOSE: 8 MG/KG
     Route: 042
     Dates: start: 20091124
  2. ACTEMRA [Suspect]
     Dosage: DOSE LEVEL: 8 MG/KG
     Route: 042
     Dates: start: 20100216
  3. ACTEMRA [Suspect]
     Dosage: DOSE LEVEL: 8 MG/KG
     Route: 042
     Dates: start: 20100316
  4. ACTEMRA [Suspect]
     Dosage: DOSE LEVEL: 8 MG/KG; DOSE INCREASED
     Route: 042
     Dates: start: 20100413
  5. ACTEMRA [Suspect]
     Dosage: DOSE LEVEL: 8 MG/KG; DOSE INTERRUPTED
     Route: 042
     Dates: start: 20100511, end: 20100511
  6. ACTEMRA [Suspect]
     Dosage: AT 8 MG/KG
     Route: 042
     Dates: start: 20100831
  7. ASPIRIN [Concomitant]
     Route: 048
  8. ATORVASTATIN [Concomitant]
     Dosage: OTHER INDICATION: ACS
  9. BUPRENORPHINE [Concomitant]
  10. CITALOPRAM HYDROBROMIDE [Concomitant]
     Indication: DEPRESSION
  11. GLICLAZIDE [Concomitant]
  12. OMEPRAZOLE [Concomitant]
     Indication: PROPHYLAXIS
     Dosage: OTHER INDICATION: REFLUX
  13. PARACETAMOL [Concomitant]
  14. FRUSEMIDE [Concomitant]
     Dosage: INDICATION: REMOVE EXCESS FLUID
  15. AMLODIPINE [Concomitant]
  16. HYDROXYCHLOROQUINE [Concomitant]
     Indication: RHEUMATOID ARTHRITIS
  17. INSULIN GLARGINE [Concomitant]
     Dosage: DOSE: 30 UNITS AT NIGHT
     Route: 058
  18. HYDROCHLOROTHIAZIDE [Concomitant]
  19. METFORMIN [Concomitant]

REACTIONS (3)
  - PERICARDITIS [None]
  - PNEUMONIA [None]
  - RHEUMATOID ARTHRITIS [None]
